FAERS Safety Report 22334108 (Version 2)
Quarter: 2023Q2

REPORT INFORMATION
  Report Type: Report from Study
  Country: KE (occurrence: KE)
  Receive Date: 20230517
  Receipt Date: 20230606
  Transmission Date: 20230721
  Serious: Yes (Death, Other)
  Sender: FDA-Public Use
  Company Number: US-Emergent Biosolutions-23000184

PATIENT
  Age: 34 Year
  Sex: Male
  Weight: 80 kg

DRUGS (16)
  1. RAXIBACUMAB [Suspect]
     Active Substance: RAXIBACUMAB
     Indication: Anthrax
     Dosage: AT A RATE OF 15 MILLILITRE PER HOUR
     Route: 065
     Dates: start: 20230429, end: 20230429
  2. RAXIBACUMAB [Suspect]
     Active Substance: RAXIBACUMAB
     Indication: Meningitis bacterial
     Dosage: AT A RATE OF 125 MILLILITRE PER HOUR
     Route: 065
     Dates: start: 20230429, end: 20230429
  3. CIPROFLOXACIN [Concomitant]
     Active Substance: CIPROFLOXACIN
     Indication: Anthrax
     Dosage: UNK
     Route: 065
     Dates: start: 20230423, end: 20230430
  4. CIPROFLOXACIN [Concomitant]
     Active Substance: CIPROFLOXACIN
     Indication: Meningitis bacterial
  5. MEROPENEM [Concomitant]
     Active Substance: MEROPENEM
     Indication: Anthrax
     Dosage: UNK
     Route: 042
     Dates: start: 20230416, end: 20230430
  6. MEROPENEM [Concomitant]
     Active Substance: MEROPENEM
     Indication: Meningitis bacterial
  7. LINEZOLID [Concomitant]
     Active Substance: LINEZOLID
     Indication: Anthrax
     Dosage: UNK
     Route: 042
     Dates: start: 20230419, end: 20230430
  8. LINEZOLID [Concomitant]
     Active Substance: LINEZOLID
     Indication: Meningitis bacterial
  9. PHENYTOIN [Concomitant]
     Active Substance: PHENYTOIN
     Dosage: UNK
     Route: 065
     Dates: start: 20230418, end: 20230430
  10. NIMODIPINE [Concomitant]
     Active Substance: NIMODIPINE
     Dosage: UNK
     Route: 065
     Dates: start: 20230418, end: 20230430
  11. NOREPINEPHRINE [Concomitant]
     Active Substance: NOREPINEPHRINE
     Dosage: UNK
     Route: 065
     Dates: start: 20230418, end: 20230430
  12. ASCORBIC ACID\VITAMIN B COMPLEX [Concomitant]
     Active Substance: ASCORBIC ACID\VITAMIN B COMPLEX
     Dosage: UNK
     Route: 065
     Dates: start: 20230418, end: 20230430
  13. MORPHINE [Concomitant]
     Active Substance: MORPHINE
     Dosage: UNK
     Route: 065
     Dates: start: 20230418, end: 20230430
  14. FUROSEMIDE [Concomitant]
     Active Substance: FUROSEMIDE
     Dosage: UNK
     Route: 065
     Dates: start: 20230418, end: 20230430
  15. LEVETIRACETAM [Concomitant]
     Active Substance: LEVETIRACETAM
     Dosage: UNK
     Route: 065
     Dates: start: 20230418, end: 20230430
  16. VITAMIN K [Concomitant]
     Active Substance: PHYTONADIONE
     Dosage: UNK
     Route: 065
     Dates: start: 20230418, end: 20230430

REACTIONS (2)
  - Cardiac arrest [Fatal]
  - Pyrexia [Recovered/Resolved]

NARRATIVE: CASE EVENT DATE: 20230429
